FAERS Safety Report 12471225 (Version 1)
Quarter: 2016Q2

REPORT INFORMATION
  Report Type: Spontaneous
  Country: US (occurrence: US)
  Receive Date: 20160616
  Receipt Date: 20160616
  Transmission Date: 20160815
  Serious: No
  Sender: FDA-Public Use
  Company Number: US-PFIZER INC-2016268134

PATIENT
  Age: 66 Year
  Sex: Male
  Weight: 120 kg

DRUGS (1)
  1. DILTIAZEM HCL [Suspect]
     Active Substance: DILTIAZEM HYDROCHLORIDE
     Dosage: 240 MG, 1X/DAY
     Dates: start: 20160408, end: 20160503

REACTIONS (6)
  - Blood pressure decreased [Unknown]
  - Oedema [Unknown]
  - Blister rupture [Unknown]
  - Somnolence [Unknown]
  - Blister [Unknown]
  - Pruritus [Unknown]
